FAERS Safety Report 11375079 (Version 1)
Quarter: 2015Q3

REPORT INFORMATION
  Report Type: Spontaneous
  Country: US (occurrence: None)
  Receive Date: 20150812
  Receipt Date: 20150812
  Transmission Date: 20151125
  Serious: Yes (Hospitalization)
  Sender: FDA-Public Use
  Company Number: None

PATIENT
  Age: 64 Year
  Sex: Female

DRUGS (26)
  1. ENALAPRIL [Concomitant]
     Active Substance: ENALAPRIL
  2. PENTOXIFYLLINE. [Concomitant]
     Active Substance: PENTOXIFYLLINE
  3. BIOTIN [Concomitant]
     Active Substance: BIOTIN
  4. METOPROLOL [Concomitant]
     Active Substance: METOPROLOL
  5. FUROSEMIDE. [Concomitant]
     Active Substance: FUROSEMIDE
  6. LEVEMIR [Concomitant]
     Active Substance: INSULIN DETEMIR
  7. VITAMIN D [Concomitant]
     Active Substance: CHOLECALCIFEROL
  8. ASA [Concomitant]
     Active Substance: ASPIRIN
  9. PANTOPRAZOLE [Concomitant]
     Active Substance: PANTOPRAZOLE SODIUM
  10. RENVELA [Concomitant]
     Active Substance: SEVELAMER CARBONATE
  11. IV FLUIDS [Concomitant]
     Active Substance: UNSPECIFIED INGREDIENT
  12. MULTI VITAMIN [Concomitant]
     Active Substance: VITAMINS
  13. HUMALOG [Concomitant]
     Active Substance: INSULIN LISPRO
  14. FUROSEMIDE. [Concomitant]
     Active Substance: FUROSEMIDE
  15. PROCARDIA [Concomitant]
     Active Substance: NIFEDIPINE
  16. PLAVIX [Concomitant]
     Active Substance: CLOPIDOGREL BISULFATE
  17. CRESTOR [Concomitant]
     Active Substance: ROSUVASTATIN CALCIUM
  18. RANIBIZUMAB [Suspect]
     Active Substance: RANIBIZUMAB
     Indication: DIABETIC RETINAL OEDEMA
     Dosage: INTRAVITREAL
     Dates: start: 20120917, end: 20150408
  19. METOPROLOL [Concomitant]
     Active Substance: METOPROLOL
  20. MINITRAN PATCH (NITROGLYCERINE PATCH) [Concomitant]
  21. AZITHROMYCIN [Concomitant]
     Active Substance: AZITHROMYCIN ANHYDROUS
  22. GLUCOPHAGE [Concomitant]
     Active Substance: METFORMIN HYDROCHLORIDE
  23. ZEGERID [Concomitant]
     Active Substance: OMEPRAZOLE\SODIUM BICARBONATE
  24. SYSTANE BALANCE [Concomitant]
     Active Substance: PROPYLENE GLYCOL
  25. PREDNISONE. [Concomitant]
     Active Substance: PREDNISONE
  26. NEPHIDIPINA [Concomitant]

REACTIONS (1)
  - Blood creatinine increased [None]

NARRATIVE: CASE EVENT DATE: 20150421
